FAERS Safety Report 8519051-0 (Version None)
Quarter: 2012Q3

REPORT INFORMATION
  Report Type: 
  Country: None (occurrence: None)
  Receive Date: 20120718
  Receipt Date: 20120712
  Transmission Date: 20120928
  Serious: Yes (Hospitalization, Other)
  Sender: FDA-Public Use
  Company Number: PHHY2012GB059941

PATIENT
  Age: 69 Year
  Sex: Male

DRUGS (5)
  1. ATORVASTATIN [Suspect]
     Dosage: 10 MG, QD
  2. BISOPROLOL FUMARATE [Concomitant]
     Dosage: 2.5 MG, QD
  3. PREDNISOLONE [Concomitant]
     Dosage: 4 MG, QD
  4. WARFARIN SODIUM [Interacting]
     Indication: ATRIAL FIBRILLATION
  5. ASPIRIN [Concomitant]
     Dosage: 75 MG, QD

REACTIONS (6)
  - CONFUSIONAL STATE [None]
  - INHIBITORY DRUG INTERACTION [None]
  - RHABDOMYOLYSIS [None]
  - MYALGIA [None]
  - ASTHENIA [None]
  - MALAISE [None]
